FAERS Safety Report 9692806 (Version 1)
Quarter: 2013Q4

REPORT INFORMATION
  Report Type: Spontaneous
  Country: US (occurrence: None)
  Receive Date: 20131115
  Receipt Date: 20131115
  Transmission Date: 20140711
  Serious: Yes (Disabling)
  Sender: FDA-Public Use
  Company Number: None

PATIENT
  Age: 68 Year
  Sex: Female
  Weight: 70.76 kg

DRUGS (1)
  1. VENLAFAXINE ER 75 MG [Suspect]
     Indication: DEPRESSION
     Route: 048
     Dates: start: 20131101, end: 20131112

REACTIONS (5)
  - Emotional disorder [None]
  - Depression [None]
  - Tremor [None]
  - Anxiety [None]
  - Hot flush [None]
